FAERS Safety Report 18479111 (Version 1)
Quarter: 2020Q4

REPORT INFORMATION
  Report Type: Spontaneous
  Country: US (occurrence: US)
  Receive Date: 20201109
  Receipt Date: 20201109
  Transmission Date: 20210114
  Serious: Yes (Hospitalization)
  Sender: FDA-Public Use
  Company Number: US-ROCHE-2709826

PATIENT
  Age: 61 Year
  Sex: Female
  Weight: 49.94 kg

DRUGS (6)
  1. BACLOFEN. [Concomitant]
     Active Substance: BACLOFEN
     Indication: MUSCLE SPASMS
  2. LYRICA [Concomitant]
     Active Substance: PREGABALIN
     Indication: NEURALGIA
  3. OCREVUS [Suspect]
     Active Substance: OCRELIZUMAB
     Indication: RELAPSING MULTIPLE SCLEROSIS
     Dosage: LAST DOSE ADMINISTERED 13-JUL-2020 ;ONGOING: YES
     Route: 042
     Dates: start: 20181231
  4. CALCIUM [Concomitant]
     Active Substance: CALCIUM
  5. DITROPAN [Concomitant]
     Active Substance: OXYBUTYNIN CHLORIDE
  6. ARMOUR THYROID [Concomitant]
     Active Substance: THYROID, PORCINE
     Indication: HYPOTHYROIDISM

REACTIONS (3)
  - Fall [Recovered/Resolved]
  - Fracture [Recovered/Resolved]
  - Osteoporosis [Not Recovered/Not Resolved]

NARRATIVE: CASE EVENT DATE: 202004
